FAERS Safety Report 5292919-7 (Version None)
Quarter: 2007Q2

REPORT INFORMATION
  Report Type: 
  Country: None (occurrence: None)
  Receive Date: 20070411
  Receipt Date: 20070323
  Transmission Date: 20071010
  Serious: Yes (Life-Threatening, Hospitalization)
  Sender: FDA-Public Use
  Company Number: GB-JNJFOC-20070305732

PATIENT
  Age: 32 Year
  Sex: Male
  Weight: 93 kg

DRUGS (3)
  1. INFLIXIMAB [Suspect]
     Indication: ANKYLOSING SPONDYLITIS
     Route: 042
  2. ARCOXIA [Concomitant]
     Indication: ANKYLOSING SPONDYLITIS
     Route: 048
  3. PARACETAMOL [Concomitant]
     Indication: ANKYLOSING SPONDYLITIS
     Route: 048

REACTIONS (2)
  - CONGESTIVE CARDIOMYOPATHY [None]
  - PNEUMONIA [None]
